FAERS Safety Report 5630595-1 (Version None)
Quarter: 2008Q1

REPORT INFORMATION
  Report Type: 
  Country: None (occurrence: None)
  Receive Date: 20080219
  Receipt Date: 20080215
  Transmission Date: 20080703
  Serious: Yes (Disabling)
  Sender: FDA-Public Use
  Company Number: B0508593A

PATIENT
  Age: 52 Year
  Sex: Female
  Weight: 60 kg

DRUGS (6)
  1. BUSULFAN [Suspect]
     Dosage: 120MG PER DAY
     Dates: start: 20060518
  2. CYCLOPHOSPHAMIDE [Suspect]
     Dosage: 4200MG PER DAY
     Dates: start: 20060522
  3. ALDESLEUKIN [Suspect]
  4. CYCLOSPORINE [Concomitant]
  5. METHOTREXATE [Concomitant]
  6. FRAXIPARINE [Concomitant]

REACTIONS (4)
  - CONVULSION [None]
  - GASTROINTESTINAL HAEMORRHAGE [None]
  - GRAFT VERSUS HOST DISEASE [None]
  - SUBARACHNOID HAEMORRHAGE [None]
